FAERS Safety Report 23875842 (Version 3)
Quarter: 2025Q4

REPORT INFORMATION
  Report Type: Spontaneous
  Country: US (occurrence: US)
  Receive Date: 20240520
  Receipt Date: 20251203
  Transmission Date: 20260119
  Serious: No
  Sender: SANOFI AVENTIS
  Company Number: US-SA-SAC20240514000964

PATIENT
  Age: 77 Year
  Sex: Female
  Weight: 90.7 kg

DRUGS (2)
  1. DUPIXENT [Suspect]
     Active Substance: DUPILUMAB
     Indication: Eosinophilic oesophagitis
     Dosage: 300 MG, QW
     Route: 058
     Dates: start: 20240426
  2. LUTEIN [Concomitant]
     Active Substance: LUTEIN

REACTIONS (3)
  - Ocular discomfort [Unknown]
  - Pain in extremity [Unknown]
  - Arthralgia [Unknown]
